FAERS Safety Report 7951413-2 (Version None)
Quarter: 2011Q4

REPORT INFORMATION
  Report Type: 
  Country: None (occurrence: None)
  Receive Date: 20111201
  Receipt Date: 20111118
  Transmission Date: 20120403
  Serious: No
  Sender: FDA-Public Use
  Company Number: US-B.I. PHARMACEUTICALS,INC./RIDGEFIELD-2011-BP-26572BP

PATIENT
  Sex: Female

DRUGS (15)
  1. ASPIRIN [Concomitant]
     Indication: CARDIOVASCULAR EVENT PROPHYLAXIS
  2. BRIMONIDINE TARTRATE [Concomitant]
     Indication: GLAUCOMA
  3. PROAIR HFA [Concomitant]
     Indication: ASTHMA
  4. PRADAXA [Suspect]
     Indication: ATRIAL FIBRILLATION
     Dosage: 300 MG
     Route: 048
     Dates: start: 20111118
  5. MAGNESIUM OXIDE [Concomitant]
     Indication: DYSPEPSIA
  6. PERCOCET [Concomitant]
     Indication: BACK PAIN
  7. LANTUS [Concomitant]
     Indication: DIABETES MELLITUS
  8. EXFORGE [Concomitant]
     Indication: HYPERTENSION
  9. ADVAIR DISKUS 100/50 [Concomitant]
     Indication: ASTHMA
  10. HUMULIN R [Concomitant]
     Indication: DIABETES MELLITUS
  11. ERGOCALCIFEROL [Concomitant]
     Indication: SUPPLEMENTATION THERAPY
  12. PLAVIX [Concomitant]
     Indication: ATRIAL FIBRILLATION
  13. LASIX [Concomitant]
     Indication: OEDEMA
  14. VYTORIN [Concomitant]
     Indication: BLOOD CHOLESTEROL INCREASED
  15. TIZANIDINE HCL [Concomitant]
     Indication: BACK PAIN

REACTIONS (1)
  - THROAT IRRITATION [None]
